FAERS Safety Report 9704960 (Version 2)
Quarter: 2013Q4

REPORT INFORMATION
  Report Type: Spontaneous
  Country: NL (occurrence: NL)
  Receive Date: 20131122
  Receipt Date: 20131122
  Transmission Date: 20140711
  Serious: Yes (Hospitalization)
  Sender: FDA-Public Use
  Company Number: NL-ASTELLAS-2012EU010423

PATIENT
  Age: 72 Year
  Sex: Male
  Weight: 87.2 kg

DRUGS (12)
  1. BLINDED ENZALUTAMIDE [Suspect]
     Indication: PROSTATE CANCER METASTATIC
     Dosage: 160 MG, UID/QD
     Route: 048
     Dates: start: 20120410, end: 20120926
  2. AUGMENTIN                          /00756801/ [Concomitant]
     Indication: LIP INFECTION
     Dosage: 625 MG, TID
     Route: 048
     Dates: start: 20121102, end: 20121109
  3. ACENOCOUMAROL [Concomitant]
     Indication: ATRIAL FIBRILLATION
     Dosage: 1 MG, UID/QD
     Route: 048
     Dates: start: 200606
  4. THYRAX                             /00068001/ [Concomitant]
     Indication: BASEDOW^S DISEASE
     Dosage: 0.1 MG, UID/QD
     Route: 048
     Dates: start: 200606
  5. METOPROLOL SUCCINATE [Concomitant]
     Indication: HYPERTENSION
     Dosage: 100 MG, UID/QD
     Route: 048
     Dates: start: 200611
  6. METHOTREXAAT [Concomitant]
     Indication: RHEUMATOID ARTHRITIS
     Dosage: 7.5 MG, WEEKLY
     Route: 048
     Dates: start: 201005
  7. SYMBICORT [Concomitant]
     Indication: EMPHYSEMA
     Dosage: UNK
     Route: 055
     Dates: start: 201109
  8. ZOMETA [Concomitant]
     Indication: PROPHYLAXIS
     Dosage: 4 MG, MONTHLY
     Route: 042
     Dates: start: 20120220
  9. PARACETAMOL [Concomitant]
     Indication: BACK PAIN
     Dosage: 1000 MG, PRN
     Route: 048
     Dates: start: 20120418
  10. DICLOFENAC [Concomitant]
     Indication: BACK PAIN
     Dosage: 25 MG, TID
     Route: 048
     Dates: start: 20120812
  11. ZOLADEX                            /00732101/ [Concomitant]
     Indication: PROSTATE CANCER
     Dosage: 10.8 MG, CYCLIC
     Route: 058
     Dates: start: 201007
  12. FOLIC ACID [Concomitant]
     Indication: RHEUMATOID ARTHRITIS
     Dosage: 5 MG, WEEKLY
     Route: 048
     Dates: start: 200906

REACTIONS (1)
  - Anaemia [Recovered/Resolved]
